FAERS Safety Report 23727542 (Version 1)
Quarter: 2024Q2

REPORT INFORMATION
  Report Type: Spontaneous
  Country: US (occurrence: None)
  Receive Date: 20240409
  Receipt Date: 20240409
  Transmission Date: 20240716
  Serious: No
  Sender: FDA-Public Use
  Company Number: None

PATIENT
  Age: 51 Year
  Sex: Female

DRUGS (1)
  1. TYMLOS [Suspect]
     Active Substance: ABALOPARATIDE
     Indication: Bone density abnormal
     Dosage: FREQUENCY : DAILY;?
     Route: 058

REACTIONS (7)
  - Hypotension [None]
  - Blood glucose increased [None]
  - Nephrolithiasis [None]
  - Incorrect dose administered [None]
  - Urinary tract infection [None]
  - Urine output decreased [None]
  - Peripheral swelling [None]

NARRATIVE: CASE EVENT DATE: 20240401
